FAERS Safety Report 14308742 (Version 1)
Quarter: 2017Q4

REPORT INFORMATION
  Report Type: Report from Study
  Country: US (occurrence: US)
  Receive Date: 20171220
  Receipt Date: 20171220
  Transmission Date: 20180321
  Serious: No
  Sender: FDA-Public Use
  Company Number: PHEH2017US040932

PATIENT
  Sex: Female

DRUGS (1)
  1. TASIGNA [Suspect]
     Active Substance: NILOTINIB
     Indication: PRODUCT USED FOR UNKNOWN INDICATION
     Dosage: 2 DF, BID
     Route: 065
     Dates: start: 2014

REACTIONS (6)
  - Lethargy [Unknown]
  - Lactose intolerance [Unknown]
  - Rash [Recovered/Resolved]
  - Stress [Unknown]
  - Fatigue [Unknown]
  - Gastric disorder [Unknown]
